FAERS Safety Report 7788638-5 (Version None)
Quarter: 2011Q3

REPORT INFORMATION
  Report Type: 
  Country: None (occurrence: None)
  Receive Date: 20110928
  Receipt Date: 20110913
  Transmission Date: 20111222
  Serious: Yes (Disabling)
  Sender: FDA-Public Use
  Company Number: 20110092

PATIENT
  Age: 67 Year
  Sex: Female
  Weight: 104.3273 kg

DRUGS (15)
  1. DEXAMETHASONE SODIUM PHOSPHATE [Suspect]
     Indication: ARTHRALGIA
     Dosage: 0.5CC, INTRA-ARTICULAR
     Route: 014
     Dates: start: 20101005, end: 20101005
  2. DEXAMETHASONE SODIUM PHOSPHATE [Suspect]
     Indication: ARTHRITIS
     Dosage: 0.5CC, INTRA-ARTICULAR
     Route: 014
     Dates: start: 20101005, end: 20101005
  3. PRIMIDONE [Concomitant]
  4. TOPAMAX [Concomitant]
  5. ASPIRIN [Concomitant]
  6. DICYCLOMINE [Concomitant]
  7. EFFEXOR [Concomitant]
  8. MELOXICAM [Concomitant]
  9. SYNTHROID [Concomitant]
  10. LIDOCAINE HCL [Suspect]
     Indication: ARTHRITIS
     Dosage: 0.5 CC INTRA-ARTICULAR
     Route: 014
     Dates: start: 20101005, end: 20101005
  11. LIDOCAINE HCL [Suspect]
     Indication: ARTHRALGIA
     Dosage: 0.5 CC INTRA-ARTICULAR
     Route: 014
     Dates: start: 20101005, end: 20101005
  12. DEXAMETHASONE ACETATE [Suspect]
     Indication: ARTHRALGIA
     Dosage: 0.5 CC INTRA-ARTICULAR
     Route: 014
     Dates: start: 20101005, end: 20101005
  13. FLEXERIL [Concomitant]
  14. MARCAINE [Suspect]
     Indication: ARTHRITIS
     Dosage: 0.5 CC INTRA-ARTICULAR
     Route: 014
     Dates: start: 20111005, end: 20111005
  15. DYAZIDE [Concomitant]

REACTIONS (15)
  - CELLULITIS [None]
  - STAPHYLOCOCCAL INFECTION [None]
  - FEELING HOT [None]
  - INJECTION SITE PAIN [None]
  - IMPAIRED HEALING [None]
  - INJECTION SITE ERYTHEMA [None]
  - DIARRHOEA [None]
  - DEEP VEIN THROMBOSIS [None]
  - LOCALISED INFECTION [None]
  - ABSCESS LIMB [None]
  - PROCEDURAL PAIN [None]
  - OSTEOARTHRITIS [None]
  - INJECTION SITE SWELLING [None]
  - INJECTION SITE ULCER [None]
  - BACTERIAL INFECTION [None]
